FAERS Safety Report 9988253 (Version 1)
Quarter: 2014Q1

REPORT INFORMATION
  Report Type: Spontaneous
  Country: IT (occurrence: IT)
  Receive Date: 20140310
  Receipt Date: 20140310
  Transmission Date: 20141002
  Serious: Yes (Other)
  Sender: FDA-Public Use
  Company Number: IT-MYLANLABS-2014S1004209

PATIENT
  Age: 32 Year
  Sex: Male

DRUGS (1)
  1. CITALOPRAM [Suspect]
     Indication: OBSESSIVE-COMPULSIVE DISORDER
     Dosage: 20 MG DAILY
     Route: 048
     Dates: start: 20100601, end: 20100901

REACTIONS (1)
  - Haematospermia [Recovered/Resolved]
